FAERS Safety Report 4918728-3 (Version None)
Quarter: 2006Q1

REPORT INFORMATION
  Report Type: 
  Country: None (occurrence: None)
  Receive Date: 20060216
  Receipt Date: 20050805
  Transmission Date: 20060701
  Serious: Yes (Hospitalization)
  Sender: FDA-Public Use
  Company Number: PCA0204590

PATIENT
  Sex: Male

DRUGS (1)
  1. 12 HOUR PSEUDOEPHEDRINE 120 MG, PERRIGO [Suspect]
     Indication: MULTIPLE ALLERGIES
     Dosage: ORALLY
     Route: 048

REACTIONS (1)
  - MYOCARDIAL INFARCTION [None]
